FAERS Safety Report 23382952 (Version 3)
Quarter: 2024Q2

REPORT INFORMATION
  Report Type: Report from Study
  Country: CA (occurrence: CA)
  Receive Date: 20240109
  Receipt Date: 20240521
  Transmission Date: 20240716
  Serious: Yes (Hospitalization, Other)
  Sender: FDA-Public Use
  Company Number: CA-OTSUKA-2023_019285

PATIENT
  Sex: Male

DRUGS (2)
  1. ARIPIPRAZOLE [Suspect]
     Active Substance: ARIPIPRAZOLE
     Indication: Product used for unknown indication
     Dosage: 300 MG, EVERY 30 DAYS
     Route: 030
  2. ARIPIPRAZOLE [Suspect]
     Active Substance: ARIPIPRAZOLE
     Dosage: 400 MG, EVERY 4 WEEKS
     Route: 030

REACTIONS (5)
  - Hallucination, auditory [Recovering/Resolving]
  - Depressed mood [Unknown]
  - Psychotic disorder [Unknown]
  - Depression [Unknown]
  - Underdose [Unknown]
